FAERS Safety Report 7170487-2 (Version None)
Quarter: 2010Q4

REPORT INFORMATION
  Report Type: 
  Country: None (occurrence: None)
  Receive Date: 20101214
  Receipt Date: 20101214
  Transmission Date: 20110411
  Serious: Yes (Death)
  Sender: FDA-Public Use
  Company Number: None

PATIENT
  Age: 64 Year
  Sex: Male
  Weight: 49.4 kg

DRUGS (1)
  1. MORPHINE [Suspect]
     Indication: PAIN
     Dosage: 15 MG BID PO
     Route: 048
     Dates: start: 20101124, end: 20101126

REACTIONS (2)
  - AGITATION [None]
  - NIGHTMARE [None]
